FAERS Safety Report 7273070 (Version 5)
Quarter: 2013Q2

REPORT INFORMATION
  Report Type: Report from Study
  Country: JP (occurrence: JP)
  Receive Date: 20100208
  Receipt Date: 20130621
  Transmission Date: 20140414
  Serious: Yes (Hospitalization, Other)
  Sender: FDA-Public Use
  Company Number: JP-ROCHE-681985

PATIENT
  Age: 61 Year
  Sex: Female

DRUGS (11)
  1. TOCILIZUMAB [Suspect]
     Indication: RHEUMATOID ARTHRITIS
     Route: 041
     Dates: start: 20091111, end: 20091111
  2. TOCILIZUMAB [Suspect]
     Route: 041
     Dates: start: 20091210, end: 20091210
  3. TOCILIZUMAB [Suspect]
     Route: 041
     Dates: start: 20100106, end: 20100106
  4. METHOTREXATE [Suspect]
     Indication: RHEUMATOID ARTHRITIS
     Route: 048
  5. METHOTREXATE [Suspect]
     Route: 048
     Dates: start: 2009, end: 20100106
  6. BENET [Suspect]
     Indication: RHEUMATOID ARTHRITIS
     Dosage: DOSAGE IS UNCERTAIN.
     Route: 048
     Dates: start: 2007, end: 200910
  7. PREDNISOLONE [Concomitant]
     Route: 048
  8. FOLIAMIN [Concomitant]
     Dosage: FORM: PERORAL AGENT
     Route: 048
  9. CLINORIL [Concomitant]
     Route: 048
  10. MEIACT [Concomitant]
     Indication: OSTEONECROSIS OF JAW
     Dosage: THREE DAYS
     Route: 048
     Dates: start: 2009, end: 2009
  11. ACRINOL [Concomitant]
     Indication: OSTEONECROSIS OF JAW
     Dosage: DOSAGE IS UNCERTAIN.
     Route: 061
     Dates: start: 2009

REACTIONS (2)
  - Osteonecrosis of jaw [Recovered/Resolved]
  - Hodgkin^s disease [Recovered/Resolved]
